FAERS Safety Report 14990878 (Version 1)
Quarter: 2018Q2

REPORT INFORMATION
  Report Type: Spontaneous
  Country: US (occurrence: US)
  Receive Date: 20180521
  Receipt Date: 20180521
  Transmission Date: 20180711
  Serious: Yes (Life-Threatening, Disabling)
  Sender: FDA-Public Use
  Company Number: None

PATIENT
  Age: 56 Year
  Sex: Female
  Weight: 63 kg

DRUGS (10)
  1. TUMERIC [Concomitant]
     Active Substance: HERBALS\TURMERIC
  2. ZANAFLEX [Suspect]
     Active Substance: TIZANIDINE HYDROCHLORIDE
     Indication: MUSCLE SPASMS
     Dosage: ?          QUANTITY:1 DF DOSAGE FORM;?
     Route: 048
     Dates: start: 20180327, end: 20180502
  3. VITAMIN D [Concomitant]
     Active Substance: CHOLECALCIFEROL
  4. KRILL OIL [Concomitant]
     Active Substance: DIETARY SUPPLEMENT
  5. AMBIEN [Concomitant]
     Active Substance: ZOLPIDEM TARTRATE
  6. ATARAX [Concomitant]
     Active Substance: HYDROXYZINE HYDROCHLORIDE
  7. VITAMIN E [Concomitant]
     Active Substance: .ALPHA.-TOCOPHEROL
  8. SPINAL CORD STIM [Concomitant]
  9. LORAZAPAM [Concomitant]
     Active Substance: LORAZEPAM
  10. DILAUDED [Concomitant]

REACTIONS (4)
  - Liver injury [None]
  - Product quality issue [None]
  - Eating disorder [None]
  - Hepatomegaly [None]

NARRATIVE: CASE EVENT DATE: 20180504
